FAERS Safety Report 9106453 (Version 1)
Quarter: 2013Q1

REPORT INFORMATION
  Report Type: Spontaneous
  Country: US (occurrence: US)
  Receive Date: 20130221
  Receipt Date: 20130221
  Transmission Date: 20140127
  Serious: No
  Sender: FDA-Public Use
  Company Number: US-PFIZER INC-2013064453

PATIENT
  Age: 51 Year
  Sex: Female
  Weight: 53.52 kg

DRUGS (4)
  1. LYRICA [Suspect]
     Indication: FIBROMYALGIA
     Dosage: UNK
  2. SAVELLA [Suspect]
     Indication: FIBROMYALGIA
     Dosage: UNK
  3. HYDROCODONE [Concomitant]
     Indication: PAIN
     Dosage: UNK
  4. PREDNISONE [Concomitant]
     Dosage: UNK

REACTIONS (6)
  - Local swelling [Unknown]
  - Swelling face [Unknown]
  - Weight increased [Unknown]
  - Hunger [Unknown]
  - Nausea [Unknown]
  - Vomiting [Unknown]
